FAERS Safety Report 7409402-2 (Version None)
Quarter: 2011Q2

REPORT INFORMATION
  Report Type: 
  Country: None (occurrence: None)
  Receive Date: 20110412
  Receipt Date: 20110223
  Transmission Date: 20111010
  Serious: Yes (Hospitalization, Other)
  Sender: FDA-Public Use
  Company Number: US-BAYER-201032129NA

PATIENT
  Age: 21 Year
  Sex: Female
  Weight: 99.32 kg

DRUGS (6)
  1. DEPO-PROVERA [Concomitant]
     Indication: CONTRACEPTION
     Dosage: 150 MG, Q3MON
     Route: 030
     Dates: start: 20081001, end: 20100501
  2. COUMADIN [Concomitant]
     Dosage: 5 MG, TIW
  3. YASMIN [Suspect]
     Indication: CONTRACEPTION
     Dosage: UNK
     Route: 048
     Dates: start: 20050801, end: 20080901
  4. COUMADIN [Concomitant]
     Indication: COAGULOPATHY
     Dosage: 10 MG, 4IW
     Route: 048
     Dates: start: 20080901, end: 20090101
  5. NSAID'S [Concomitant]
     Dosage: 800 MG, UNK
     Dates: start: 20080812
  6. OCELLA [Suspect]
     Indication: CONTRACEPTION
     Dosage: UNK
     Route: 048
     Dates: start: 20050819, end: 20080901

REACTIONS (6)
  - PAIN IN EXTREMITY [None]
  - DEEP VEIN THROMBOSIS [None]
  - THROMBOSIS [None]
  - PAIN [None]
  - OEDEMA PERIPHERAL [None]
  - COAGULOPATHY [None]
